FAERS Safety Report 14109396 (Version 1)
Quarter: 2017Q4

REPORT INFORMATION
  Report Type: Spontaneous
  Country: FR (occurrence: FR)
  Receive Date: 20171019
  Receipt Date: 20171019
  Transmission Date: 20180321
  Serious: Yes (Hospitalization)
  Sender: FDA-Public Use
  Company Number: FR-009507513-1710FRA007500

PATIENT
  Age: 30 Year
  Sex: Female

DRUGS (4)
  1. GONADOTROPIN, CHORIONIC [Suspect]
     Active Substance: CHORIOGONADOTROPIN ALFA
     Indication: INFERTILITY
     Dosage: 10000 IU, ONCE
     Route: 030
     Dates: start: 20170422, end: 20170422
  2. MENOTROPINS [Suspect]
     Active Substance: MENOTROPINS
     Indication: INFERTILITY
     Dosage: 450 IU, QD
     Route: 058
     Dates: start: 20170414, end: 20170421
  3. DECAPEPTYL (ACETATE) [Suspect]
     Active Substance: TRIPTORELIN ACETATE
     Indication: INFERTILITY
     Dosage: 2 DF, ONCE
     Route: 058
     Dates: start: 20170422, end: 20170422
  4. CETROTIDE [Suspect]
     Active Substance: CETRORELIX ACETATE
     Indication: INFERTILITY
     Dosage: 0.25 MG, QD
     Route: 058
     Dates: start: 20170418, end: 20170422

REACTIONS (1)
  - Peritoneal haemorrhage [Recovered/Resolved]

NARRATIVE: CASE EVENT DATE: 20170424
